FAERS Safety Report 23879902 (Version 1)
Quarter: 2024Q2

REPORT INFORMATION
  Report Type: Spontaneous
  Country: PL (occurrence: PL)
  Receive Date: 20240521
  Receipt Date: 20240521
  Transmission Date: 20240716
  Serious: Yes (Hospitalization, Other)
  Sender: FDA-Public Use
  Company Number: PL-LESVI-2024002305

PATIENT
  Age: 21 Year
  Sex: Female

DRUGS (10)
  1. LEVETIRACETAM [Suspect]
     Active Substance: LEVETIRACETAM
     Indication: Generalised tonic-clonic seizure
     Dosage: UNK
     Route: 065
  2. LEVETIRACETAM [Suspect]
     Active Substance: LEVETIRACETAM
     Indication: Epilepsy
  3. METHYLPREDNISOLONE [Concomitant]
     Active Substance: METHYLPREDNISOLONE
     Indication: Drug reaction with eosinophilia and systemic symptoms
     Dosage: 32 MILLIGRAM WITH SUBSEQUENT GRADUAL TAPERING TO DISCONTINUATION OVER THE COURSE OF ONE MONTH
     Route: 042
  4. METHYLPREDNISOLONE [Concomitant]
     Active Substance: METHYLPREDNISOLONE
     Dosage: 1 MILLIGRAM/KILOGRAM, QD
     Route: 042
  5. METHYLPREDNISOLONE [Concomitant]
     Active Substance: METHYLPREDNISOLONE
     Dosage: 250 MILLIGRAM (FOR 4 CONSECUTIVE DAYS)
     Route: 042
  6. LAMOTRIGINE [Concomitant]
     Active Substance: LAMOTRIGINE
     Indication: Generalised tonic-clonic seizure
     Dosage: UNK
     Route: 065
  7. VALPROATE [Concomitant]
     Active Substance: VALPROIC ACID
     Indication: Generalised tonic-clonic seizure
     Dosage: UNK
     Route: 065
  8. CYCLOSPORINE [Concomitant]
     Active Substance: CYCLOSPORINE
     Indication: Drug reaction with eosinophilia and systemic symptoms
     Dosage: 4 MILLIGRAM/KILOGRAM, QD
     Route: 065
  9. RUPATADINE [Concomitant]
     Active Substance: RUPATADINE
     Indication: Drug reaction with eosinophilia and systemic symptoms
     Dosage: 20 MILLIGRAM, QD (10 MILLIGRAM, 2X/DAY (BID)
     Route: 065
  10. RUPATADINE [Concomitant]
     Active Substance: RUPATADINE
     Dosage: 32 MILLIGRAM
     Route: 065

REACTIONS (1)
  - Skin reaction [Recovered/Resolved]
